FAERS Safety Report 5667509-4 (Version None)
Quarter: 2008Q1

REPORT INFORMATION
  Report Type: 
  Country: None (occurrence: None)
  Receive Date: 20080315
  Receipt Date: 20080122
  Transmission Date: 20080703
  Serious: No
  Sender: FDA-Public Use
  Company Number: US-ABBOTT-08P-163-0434944-00

PATIENT
  Sex: Female
  Weight: 104.5 kg

DRUGS (14)
  1. HUMIRA [Suspect]
     Indication: RHEUMATOID ARTHRITIS
     Route: 058
     Dates: start: 20071226, end: 20071226
  2. HUMIRA [Suspect]
     Route: 058
     Dates: end: 20080109
  3. HUMIRA [Suspect]
     Route: 058
     Dates: start: 20080117
  4. SERTRALINE [Concomitant]
     Indication: DEPRESSION
     Route: 048
  5. AMEPROSOL [Concomitant]
     Indication: DRUG USE FOR UNKNOWN INDICATION
     Route: 048
  6. LISINOPRIL/IICTZ 10/2.5MG TABS [Concomitant]
     Indication: HYPERTENSION
     Route: 048
  7. DIPHEN/ATROP 2.5MG TABS [Concomitant]
     Indication: CROHN'S DISEASE
     Route: 048
  8. BUDESONIDE [Concomitant]
     Indication: ASTHMA
     Route: 061
  9. SERETIDE [Concomitant]
     Indication: ASTHMA
     Route: 055
  10. ACETYLSALICYLIC ACID [Concomitant]
     Indication: DRUG USE FOR UNKNOWN INDICATION
     Route: 048
  11. VITAMIN CAP [Concomitant]
     Indication: VITAMIN SUPPLEMENTATION
     Route: 048
  12. SUPER B COMPLEX [Concomitant]
     Indication: VITAMIN SUPPLEMENTATION
     Route: 048
  13. CALCIUM [Concomitant]
     Indication: MINERAL SUPPLEMENTATION
     Route: 048
  14. HYDROCODONE BITARTRATE + ACETAMINOPHEN [Concomitant]
     Indication: ARTHRALGIA
     Dosage: 1 500MG PILL IN THE MORNING
     Route: 048

REACTIONS (2)
  - ARTHRALGIA [None]
  - PAIN [None]
